FAERS Safety Report 8120410-9 (Version None)
Quarter: 2012Q1

REPORT INFORMATION
  Report Type: 
  Country: None (occurrence: None)
  Receive Date: 20120207
  Receipt Date: 20120125
  Transmission Date: 20120608
  Serious: Yes (Death)
  Sender: FDA-Public Use
  Company Number: IL-MYLANLABS-2012S1002205

PATIENT
  Age: 87 Year
  Sex: Female

DRUGS (2)
  1. ETOPOSIDE [Suspect]
     Indication: NEUROENDOCRINE CARCINOMA OF THE SKIN
     Dosage: 75 MG/M2 DAYS 1-3 WEEKLY
     Route: 065
  2. CARBOPLATIN [Suspect]
     Indication: NEUROENDOCRINE CARCINOMA OF THE SKIN
     Dosage: AUC5 DAY 1 WEEKLY
     Route: 065

REACTIONS (2)
  - PANCYTOPENIA [None]
  - TUMOUR LYSIS SYNDROME [None]
